FAERS Safety Report 14237153 (Version 1)
Quarter: 2017Q4

REPORT INFORMATION
  Report Type: Spontaneous
  Country: FR (occurrence: FR)
  Receive Date: 20171129
  Receipt Date: 20171129
  Transmission Date: 20180321
  Serious: Yes (Life-Threatening, Hospitalization, Other)
  Sender: FDA-Public Use
  Company Number: FR-ELI_LILLY_AND_COMPANY-FR201711009193

PATIENT
  Age: 78 Year
  Sex: Female

DRUGS (3)
  1. GEMZAR [Suspect]
     Active Substance: GEMCITABINE HYDROCHLORIDE
     Indication: ADENOCARCINOMA PANCREAS
     Dosage: UNK UNK, UNKNOWN
     Route: 042
     Dates: start: 201502, end: 20150402
  2. LEVOTHYROX [Concomitant]
     Active Substance: LEVOTHYROXINE
     Indication: HYPOTHYROIDISM
     Dosage: UNK, UNKNOWN
     Route: 065
  3. LEVOTHYROX [Concomitant]
     Active Substance: LEVOTHYROXINE
     Dosage: 100 UG, UNK
     Route: 065
     Dates: start: 201504

REACTIONS (14)
  - Hypothyroidism [Unknown]
  - Rash maculo-papular [Unknown]
  - Pyelocaliectasis [Unknown]
  - Hypertensive heart disease [Unknown]
  - Right ventricular failure [Recovering/Resolving]
  - Disorientation [Unknown]
  - General physical health deterioration [Unknown]
  - Cholestasis [Recovering/Resolving]
  - Systemic inflammatory response syndrome [Unknown]
  - Pancytopenia [Recovering/Resolving]
  - Hypothermia [Unknown]
  - Gingival bleeding [Unknown]
  - Renal failure [Recovering/Resolving]
  - Liver function test abnormal [Unknown]

NARRATIVE: CASE EVENT DATE: 2015
